FAERS Safety Report 6036645-5 (Version None)
Quarter: 2009Q1

REPORT INFORMATION
  Report Type: 
  Country: None (occurrence: None)
  Receive Date: 20090114
  Receipt Date: 20090109
  Transmission Date: 20090719
  Serious: Yes (Life-Threatening)
  Sender: FDA-Public Use
  Company Number: US-ROCHE-604649

PATIENT
  Sex: Female
  Weight: 59 kg

DRUGS (5)
  1. BONIVA [Suspect]
     Indication: OSTEOPOROSIS
     Route: 048
     Dates: start: 20080301, end: 20080401
  2. CARDIZEM LA [Concomitant]
  3. XANAX [Concomitant]
     Indication: ANXIETY
     Route: 048
  4. DYAZIDE [Concomitant]
     Indication: HYPERTENSION
     Dosage: STRENGTH: 37.5/25
     Route: 048
  5. CARDIZEM [Concomitant]
     Indication: HYPERTENSION
     Dosage: STRENGTH: LA 360
     Route: 048

REACTIONS (14)
  - ASTHENIA [None]
  - BACK PAIN [None]
  - BLOOD CALCIUM DECREASED [None]
  - BLOOD PHOSPHORUS DECREASED [None]
  - BLOOD POTASSIUM DECREASED [None]
  - CHEST PAIN [None]
  - CHILLS [None]
  - CONFUSIONAL STATE [None]
  - DIARRHOEA [None]
  - HYPOTENSION [None]
  - NAUSEA [None]
  - PYREXIA [None]
  - THROAT IRRITATION [None]
  - VOMITING [None]
